FAERS Safety Report 10235060 (Version 3)
Quarter: 2014Q3

REPORT INFORMATION
  Report Type: Spontaneous
  Country: JP (occurrence: JP)
  Receive Date: 20140613
  Receipt Date: 20140709
  Transmission Date: 20150326
  Serious: Yes (Death, Other)
  Sender: FDA-Public Use
  Company Number: PHHY2014JP071713

PATIENT
  Age: 59 Year
  Sex: Male

DRUGS (2)
  1. GLIVEC [Suspect]
     Active Substance: IMATINIB MESYLATE
     Indication: METASTASES TO LIVER
  2. GLIVEC [Suspect]
     Active Substance: IMATINIB MESYLATE
     Indication: GASTROINTESTINAL STROMAL TUMOUR
     Route: 048

REACTIONS (5)
  - Splenic neoplasm malignancy unspecified [Unknown]
  - Gastrointestinal stromal tumour [Fatal]
  - Abdominal mass [Unknown]
  - Malignant neoplasm progression [Fatal]
  - Drug intolerance [Unknown]
